FAERS Safety Report 10385781 (Version 3)
Quarter: 2014Q3

REPORT INFORMATION
  Report Type: Spontaneous
  Country: JP (occurrence: None)
  Receive Date: 20140812
  Receipt Date: 20140917
  Transmission Date: 20150326
  Serious: Yes (Hospitalization)
  Sender: FDA-Public Use
  Company Number: JP-016701

PATIENT
  Age: 86 Year
  Sex: Male
  Weight: 58 kg

DRUGS (12)
  1. MAGNESIUM OXIDE. [Concomitant]
     Active Substance: MAGNESIUM OXIDE
  2. ARTIST [Concomitant]
     Active Substance: CARVEDILOL
  3. BAYASPIRIN [Concomitant]
     Active Substance: ASPIRIN
  4. DEGARELIX (GONAX) 80MG [Suspect]
     Active Substance: DEGARELIX
     Indication: PROSTATE CANCER
     Route: 058
     Dates: start: 2013
  5. LENDORMIN [Concomitant]
     Active Substance: BROTIZOLAM
  6. FLIVAS [Concomitant]
     Active Substance: NAFTOPIDIL
  7. NORVASC [Concomitant]
     Active Substance: AMLODIPINE BESYLATE
  8. MARZULENE S [Concomitant]
     Active Substance: GLUTAMINE\SODIUM GUALENATE
  9. BLOPRESS [Concomitant]
     Active Substance: CANDESARTAN CILEXETIL
  10. WARFARIN K [Concomitant]
     Active Substance: WARFARIN POTASSIUM
  11. FUROSEMIDE. [Concomitant]
     Active Substance: FUROSEMIDE
  12. BICALUTAMIDE. [Concomitant]
     Active Substance: BICALUTAMIDE

REACTIONS (7)
  - Feeling hot [None]
  - Subcutaneous abscess [None]
  - Injection site swelling [None]
  - Injection site erythema [None]
  - Cellulitis [None]
  - Asthenia [None]
  - Injection site abscess [None]

NARRATIVE: CASE EVENT DATE: 2013
